FAERS Safety Report 5614323-1 (Version None)
Quarter: 2008Q1

REPORT INFORMATION
  Report Type: 
  Country: None (occurrence: None)
  Receive Date: 20080205
  Receipt Date: 20080128
  Transmission Date: 20080703
  Serious: Yes (Hospitalization)
  Sender: FDA-Public Use
  Company Number: US-SANOFI-SYNTHELABO-F01200500354

PATIENT
  Sex: Male
  Weight: 80.5 kg

DRUGS (11)
  1. WARFARIN SODIUM [Concomitant]
     Indication: PROPHYLAXIS
     Dosage: UNK
     Route: 065
     Dates: start: 20050120
  2. DILAUDID [Concomitant]
     Indication: ABDOMINAL PAIN
     Dosage: UNK
     Route: 065
     Dates: start: 20050224
  3. OXYCONTIN [Concomitant]
     Indication: ABDOMINAL PAIN
     Dosage: UNK
     Route: 065
     Dates: start: 20050224
  4. LITHIUM CARBONATE [Concomitant]
     Indication: BIPOLAR DISORDER
  5. ATENOLOL [Concomitant]
     Indication: HYPERTENSION
     Dosage: UNK
     Route: 065
     Dates: start: 20000101
  6. LISINOPRIL [Concomitant]
     Indication: HYPERTENSION
     Dosage: UNK
     Route: 065
     Dates: start: 20000101
  7. CA/MG OR PLACEBO [Suspect]
     Route: 042
     Dates: start: 20050222, end: 20050224
  8. BEVACIZUMAB [Suspect]
     Route: 042
     Dates: start: 20050222, end: 20050222
  9. LEUCOVORIN CALCIUM [Suspect]
     Route: 042
     Dates: start: 20050222, end: 20050222
  10. OXALIPLATIN [Suspect]
     Indication: COLORECTAL CANCER METASTATIC
     Route: 042
     Dates: start: 20050222, end: 20050222
  11. FLUOROURACIL [Suspect]
     Dosage: 2400 MG/M2 IV ON DAY 1 AND DAY 2, Q2W
     Route: 042
     Dates: start: 20050222, end: 20050224

REACTIONS (2)
  - HYPOTENSION [None]
  - RESPIRATORY FAILURE [None]
